FAERS Safety Report 19404789 (Version 1)
Quarter: 2021Q2

REPORT INFORMATION
  Report Type: Spontaneous
  Country: US (occurrence: US)
  Receive Date: 20210611
  Receipt Date: 20210611
  Transmission Date: 20210717
  Serious: Yes (Hospitalization)
  Sender: FDA-Public Use
  Company Number: None

PATIENT
  Age: 24 Year
  Sex: Male

DRUGS (6)
  1. DOXYCYCLINE. [Concomitant]
     Active Substance: DOXYCYCLINE
  2. FOLIC ACID. [Concomitant]
     Active Substance: FOLIC ACID
  3. MS CONTIN [Concomitant]
     Active Substance: MORPHINE SULFATE
  4. MORPHINE [Concomitant]
     Active Substance: MORPHINE
  5. MSM [Concomitant]
     Active Substance: DIMETHYL SULFONE
  6. SIKLOS [Suspect]
     Active Substance: HYDROXYUREA
     Indication: SICKLE CELL DISEASE
     Route: 048
     Dates: start: 20210507

REACTIONS (1)
  - Therapy interrupted [None]
